FAERS Safety Report 10227078 (Version 4)
Quarter: 2014Q3

REPORT INFORMATION
  Report Type: Spontaneous
  Country: US (occurrence: US)
  Receive Date: 20140610
  Receipt Date: 20140704
  Transmission Date: 20150326
  Serious: Yes (Other)
  Sender: FDA-Public Use
  Company Number: US-MERCK-1406USA003355

PATIENT
  Age: 71 Year
  Sex: Female

DRUGS (19)
  1. MK-9378 [Concomitant]
     Active Substance: UNSPECIFIED INGREDIENT
  2. QVAR [Concomitant]
     Active Substance: BECLOMETHASONE DIPROPIONATE
  3. PROAIR HFA [Concomitant]
     Active Substance: ALBUTEROL SULFATE
  4. PROBIOTICS (UNSPECIFIED) [Concomitant]
     Active Substance: PROBIOTICS NOS
  5. JANUVIA [Suspect]
     Active Substance: SITAGLIPTIN PHOSPHATE
     Indication: TYPE 2 DIABETES MELLITUS
     Dosage: 100 MG, QD
     Route: 048
     Dates: start: 19990101
  6. FLUTICASONE [Concomitant]
     Active Substance: FLUTICASONE\FLUTICASONE PROPIONATE
  7. ALLEGRA [Concomitant]
     Active Substance: FEXOFENADINE HYDROCHLORIDE
  8. ALLOPURINOL. [Concomitant]
     Active Substance: ALLOPURINOL
  9. VITAMINS (UNSPECIFIED) [Concomitant]
     Active Substance: VITAMINS
  10. ACETAMINOPHEN. [Concomitant]
     Active Substance: ACETAMINOPHEN
  11. SYSTANE [Concomitant]
     Active Substance: HYPROMELLOSE 2910 (4000 MPA.S)
  12. LEXAPRO [Concomitant]
     Active Substance: ESCITALOPRAM OXALATE
  13. GREAT HEALTHWORKS OMEGA XL [Concomitant]
  14. ASPIRIN. [Concomitant]
     Active Substance: ASPIRIN
  15. HYDROCHLOROTHIAZIDE. [Concomitant]
     Active Substance: HYDROCHLOROTHIAZIDE
  16. TUMS [Concomitant]
     Active Substance: CALCIUM CARBONATE
  17. SULFA (SULFACETAMIDE SODIUM (+) SULFADIAZINE (+) SULFAMETHAZINE) [Concomitant]
  18. LISINOPRIL. [Concomitant]
     Active Substance: LISINOPRIL
  19. AMLODIPINE [Concomitant]
     Active Substance: AMLODIPINE BESYLATE

REACTIONS (25)
  - Limb injury [Unknown]
  - Limb injury [Unknown]
  - Diarrhoea [Unknown]
  - Neoplasm malignant [Unknown]
  - Arthritis [Not Recovered/Not Resolved]
  - Fatigue [Unknown]
  - Breast cancer [Not Recovered/Not Resolved]
  - Diarrhoea [Not Recovered/Not Resolved]
  - Fatigue [Unknown]
  - Wound haemorrhage [Unknown]
  - Skin cancer [Not Recovered/Not Resolved]
  - Stress [Unknown]
  - Nausea [Unknown]
  - Thirst [Unknown]
  - Feeling hot [Unknown]
  - Dizziness [Unknown]
  - Foot fracture [Unknown]
  - Urinary incontinence [Not Recovered/Not Resolved]
  - Thirst [Unknown]
  - Contusion [Unknown]
  - Pain in extremity [Not Recovered/Not Resolved]
  - Bladder disorder [Unknown]
  - Colon cancer [Not Recovered/Not Resolved]
  - Fatigue [Not Recovered/Not Resolved]
  - Memory impairment [Unknown]

NARRATIVE: CASE EVENT DATE: 2013
